FAERS Safety Report 16433895 (Version 2)
Quarter: 2019Q3

REPORT INFORMATION
  Report Type: Spontaneous
  Country: US (occurrence: US)
  Receive Date: 20190614
  Receipt Date: 20190710
  Transmission Date: 20191004
  Serious: Yes (Hospitalization)
  Sender: FDA-Public Use
  Company Number: US-PFIZER INC-2019024085

PATIENT
  Age: 88 Year
  Sex: Female

DRUGS (1)
  1. LYRICA [Suspect]
     Active Substance: PREGABALIN
     Dosage: 50 MG, AS NEEDED (2-4 PER DAY DEPENDING ON WHETHER SHE IS HANDLING THE SIDE EFFECTS)

REACTIONS (2)
  - Intentional product misuse [Unknown]
  - Pneumonia [Unknown]
